FAERS Safety Report 5511961-1 (Version None)
Quarter: 2007Q4

REPORT INFORMATION
  Report Type: 
  Country: None (occurrence: None)
  Receive Date: 20071109
  Receipt Date: 20071030
  Transmission Date: 20080405
  Serious: No
  Sender: FDA-Public Use
  Company Number: US-MERCK-0708USA02570

PATIENT
  Age: 51 Year
  Sex: Male

DRUGS (5)
  1. ZETIA [Suspect]
     Indication: BLOOD CHOLESTEROL INCREASED
     Route: 048
     Dates: start: 20041117
  2. ASPIRIN [Suspect]
     Route: 065
  3. ALEVE [Suspect]
     Route: 065
  4. GLUCOSAMINE [Concomitant]
     Route: 065
  5. TYLENOL (CAPLET) [Concomitant]
     Route: 065

REACTIONS (2)
  - NASOPHARYNGITIS [None]
  - TINNITUS [None]
